FAERS Safety Report 7009874-1 (Version None)
Quarter: 2010Q3

REPORT INFORMATION
  Report Type: 
  Country: None (occurrence: None)
  Receive Date: 20100923
  Receipt Date: 20100913
  Transmission Date: 20110219
  Serious: Yes (Other)
  Sender: FDA-Public Use
  Company Number: US-ROCHE-728008

PATIENT
  Sex: Male
  Weight: 112.5 kg

DRUGS (16)
  1. MYCOPHENOLATE MOFETIL [Suspect]
     Route: 048
     Dates: start: 19950101
  2. ACYCLOVIR [Concomitant]
  3. ALLOPURINOL [Concomitant]
  4. CLONAZEPAM [Concomitant]
  5. ASPIRIN [Concomitant]
  6. LEXAPRO [Concomitant]
  7. DOCUSATE [Concomitant]
  8. FOLIC ACID [Concomitant]
  9. LAMICTAL [Concomitant]
  10. LIPOFLAVONOID [Concomitant]
  11. MAGNESIUM OXIDE [Concomitant]
  12. PROTONIX [Concomitant]
  13. PREDNISONE [Concomitant]
  14. PROGRAFT [Concomitant]
  15. SIMVASTATIN [Concomitant]
  16. LORATADINE [Concomitant]

REACTIONS (3)
  - DISORIENTATION [None]
  - GAIT DISTURBANCE [None]
  - WEIGHT DECREASED [None]
